FAERS Safety Report 9437941 (Version 1)
Quarter: 2013Q3

REPORT INFORMATION
  Report Type: Spontaneous
  Country: US (occurrence: US)
  Receive Date: 20130802
  Receipt Date: 20130802
  Transmission Date: 20140515
  Serious: No
  Sender: FDA-Public Use
  Company Number: US-BRISTOL-MYERS SQUIBB COMPANY-18783662

PATIENT
  Age: 78 Year
  Sex: Female

DRUGS (10)
  1. COUMADIN [Suspect]
  2. WARFARIN SODIUM [Suspect]
  3. ATARAX [Concomitant]
  4. DILTIAZEM HCL [Concomitant]
  5. LEVOTHYROXINE [Concomitant]
  6. PREVACID [Concomitant]
  7. PRAVASTATINE [Concomitant]
  8. DIGOXIN [Concomitant]
  9. PAXIL [Concomitant]
  10. VALIUM [Concomitant]

REACTIONS (4)
  - International normalised ratio increased [Unknown]
  - Fall [Unknown]
  - Ear infection [Unknown]
  - Dizziness [Unknown]
